FAERS Safety Report 25334522 (Version 1)
Quarter: 2025Q2

REPORT INFORMATION
  Report Type: Spontaneous
  Country: US (occurrence: US)
  Receive Date: 20250520
  Receipt Date: 20250520
  Transmission Date: 20250717
  Serious: No
  Sender: AZURITY PHARMACEUTICALS
  Company Number: US-AZURITY PHARMACEUTICALS, INC.-AZR202504-001137

PATIENT
  Sex: Male

DRUGS (2)
  1. TESTOSTERONE CYPIONATE [Suspect]
     Active Substance: TESTOSTERONE CYPIONATE
     Indication: Blood testosterone decreased
     Dosage: 1 MILLILITER, WEEKLY
     Route: 065
     Dates: start: 20250402
  2. TESTOSTERONE CYPIONATE [Suspect]
     Active Substance: TESTOSTERONE CYPIONATE
     Dosage: 1 MILLILITER, WEEKLY
     Route: 065
     Dates: start: 20250411

REACTIONS (3)
  - Product with quality issue administered [Unknown]
  - Product gel formation [Unknown]
  - Product quality issue [Unknown]
